FAERS Safety Report 16461252 (Version 1)
Quarter: 2019Q2

REPORT INFORMATION
  Report Type: Report from Study
  Country: CA (occurrence: CA)
  Receive Date: 20190620
  Receipt Date: 20190620
  Transmission Date: 20190711
  Serious: Yes (Other)
  Sender: FDA-Public Use
  Company Number: CA-VERTEX PHARMACEUTICALS-2019-005751

PATIENT
  Sex: Female

DRUGS (1)
  1. ORKAMBI [Suspect]
     Active Substance: IVACAFTOR\LUMACAFTOR
     Indication: CYSTIC FIBROSIS
     Dosage: UNK
     Route: 048
     Dates: start: 201805

REACTIONS (8)
  - Infective pulmonary exacerbation of cystic fibrosis [Unknown]
  - Aspergilloma [Unknown]
  - Pulmonary necrosis [Unknown]
  - Pulmonary cavitation [Unknown]
  - Haemoptysis [Unknown]
  - Drug level decreased [Unknown]
  - Drug interaction [Unknown]
  - Pulmonary function test decreased [Unknown]
